FAERS Safety Report 6710280-5 (Version None)
Quarter: 2010Q2

REPORT INFORMATION
  Report Type: 
  Country: None (occurrence: None)
  Receive Date: 20100430
  Receipt Date: 20100416
  Transmission Date: 20101027
  Serious: Yes (Other)
  Sender: FDA-Public Use
  Company Number: 010595

PATIENT
  Age: 51 Year
  Sex: Male

DRUGS (3)
  1. VIMPAT [Suspect]
     Indication: PARTIAL SEIZURES
     Dosage: 9INCREASE OF 100 MG/WEEK. MAXIMUM DOSE: 100 MG.)
     Dates: start: 20090223, end: 20090310
  2. LEVETIRACETAM [Concomitant]
  3. PHENYTOIN [Concomitant]

REACTIONS (3)
  - ASTHENIA [None]
  - FATIGUE [None]
  - HYPERHIDROSIS [None]
